FAERS Safety Report 5721642-7 (Version None)
Quarter: 2008Q2

REPORT INFORMATION
  Report Type: 
  Country: None (occurrence: None)
  Receive Date: 20080429
  Receipt Date: 20070315
  Transmission Date: 20081010
  Serious: No
  Sender: FDA-Public Use
  Company Number: US-ASTRAZENECA-2007UW05146

PATIENT
  Age: 60 Year
  Sex: Female
  Weight: 68.9 kg

DRUGS (5)
  1. NEXIUM [Suspect]
     Indication: DYSPEPSIA
     Route: 048
     Dates: start: 20070201
  2. COZAAR [Concomitant]
  3. LIPITOR [Concomitant]
  4. CALCIUM [Concomitant]
  5. MULTIPLE VITAMIN [Concomitant]

REACTIONS (1)
  - BONE DENSITY DECREASED [None]
